FAERS Safety Report 6676486-9 (Version None)
Quarter: 2010Q2

REPORT INFORMATION
  Report Type: 
  Country: None (occurrence: None)
  Receive Date: 20100412
  Receipt Date: 20100406
  Transmission Date: 20101027
  Serious: Yes (Other)
  Sender: FDA-Public Use
  Company Number: PHHY2010FI21125

PATIENT

DRUGS (1)
  1. ELIDEL [Suspect]
     Indication: DERMATITIS ATOPIC

REACTIONS (2)
  - INHIBITORY DRUG INTERACTION [None]
  - LYMPHADENITIS [None]
